FAERS Safety Report 10261368 (Version 1)
Quarter: 2014Q2

REPORT INFORMATION
  Report Type: Spontaneous
  Country: US (occurrence: US)
  Receive Date: 20140626
  Receipt Date: 20140626
  Transmission Date: 20141212
  Serious: No
  Sender: FDA-Public Use
  Company Number: US-MYLANLABS-2013S1016946

PATIENT
  Age: 66 Year
  Sex: Male
  Weight: 92.99 kg

DRUGS (2)
  1. METHOTREXATE TABLETS, USP [Suspect]
     Indication: RHEUMATOID ARTHRITIS
     Route: 048
     Dates: start: 20080108, end: 20080720
  2. PREDNISONE [Suspect]
     Indication: RHEUMATOID ARTHRITIS
     Route: 048
     Dates: start: 20080711, end: 20080711

REACTIONS (3)
  - Rash [Not Recovered/Not Resolved]
  - Pemphigoid [Not Recovered/Not Resolved]
  - Herpes zoster [Not Recovered/Not Resolved]
